FAERS Safety Report 24716399 (Version 1)
Quarter: 2024Q4

REPORT INFORMATION
  Report Type: Spontaneous
  Country: US (occurrence: US)
  Receive Date: 20241210
  Receipt Date: 20241210
  Transmission Date: 20250114
  Serious: No
  Sender: NOVARTIS
  Company Number: US-002147023-NVSC2024US230171

PATIENT
  Age: 18 Year
  Sex: Male

DRUGS (1)
  1. COSENTYX [Suspect]
     Active Substance: SECUKINUMAB
     Indication: Product used for unknown indication
     Dosage: 300 MG (ONCE EVERY 30 DAYS)
     Route: 058
     Dates: start: 20241202, end: 20241202

REACTIONS (3)
  - Product storage error [Unknown]
  - Injection site pain [Unknown]
  - Product availability issue [Unknown]

NARRATIVE: CASE EVENT DATE: 20241202
